FAERS Safety Report 12211752 (Version 2)
Quarter: 2016Q2

REPORT INFORMATION
  Report Type: Spontaneous
  Country: US (occurrence: US)
  Receive Date: 20160325
  Receipt Date: 20160406
  Transmission Date: 20160815
  Serious: Yes (Hospitalization, Other)
  Sender: FDA-Public Use
  Company Number: US-AMGEN-USASP2016035204

PATIENT
  Age: 23 Year
  Sex: Female
  Weight: 76.8 kg

DRUGS (2)
  1. BLINCYTO [Suspect]
     Active Substance: BLINATUMOMAB
     Indication: ACUTE LYMPHOCYTIC LEUKAEMIA RECURRENT
     Dosage: 28 MUG, QD
     Route: 042
     Dates: start: 20160218, end: 20160317
  2. METHOTREXATE [Suspect]
     Active Substance: METHOTREXATE
     Indication: ACUTE LYMPHOCYTIC LEUKAEMIA
     Dosage: 10 UNK, ONE TIME DOSE
     Route: 037
     Dates: start: 20160316, end: 20160316

REACTIONS (6)
  - CSF white blood cell count increased [Recovered/Resolved]
  - Pyrexia [Unknown]
  - Hemiplegia [Recovered/Resolved]
  - Cerebral ischaemia [Recovered/Resolved]
  - Hemiparesis [Unknown]
  - Cytokine release syndrome [Recovered/Resolved]

NARRATIVE: CASE EVENT DATE: 20160318
